FAERS Safety Report 4370104-0 (Version None)
Quarter: 2004Q2

REPORT INFORMATION
  Report Type: 
  Country: None (occurrence: None)
  Receive Date: 20040527
  Receipt Date: 20040517
  Transmission Date: 20050107
  Serious: No
  Sender: FDA-Public Use
  Company Number: FR_031203292

PATIENT
  Age: 53 Year
  Sex: Female
  Weight: 52 kg

DRUGS (4)
  1. GEMZAR [Suspect]
     Indication: NON-SMALL CELL LUNG CANCER
     Dosage: 1250 MG/M2/2 OTHER
     Dates: start: 20031104, end: 20031217
  2. CARBOPLATIN [Concomitant]
  3. ONDANSETRON HYDROCHLORIDE [Concomitant]
  4. SOLU-MEDROL [Concomitant]

REACTIONS (2)
  - CHOLESTASIS [None]
  - CONDITION AGGRAVATED [None]
